FAERS Safety Report 4504835-6 (Version None)
Quarter: 2004Q4

REPORT INFORMATION
  Report Type: 
  Country: None (occurrence: None)
  Receive Date: 20040927
  Receipt Date: 20040708
  Transmission Date: 20050328
  Serious: No
  Sender: FDA-Public Use
  Company Number: USA040772184

PATIENT
  Age: 18 Year
  Sex: Male

DRUGS (3)
  1. PROZAC [Suspect]
     Indication: DEPRESSION
     Dosage: 20 MG
  2. STRATTERA [Suspect]
     Indication: ATTENTION DEFICIT/HYPERACTIVITY DISORDER
     Dosage: 100 MG DAY
     Dates: start: 20030616
  3. TRILEPTAL [Concomitant]

REACTIONS (4)
  - AGITATION [None]
  - ANGER [None]
  - IRRITABILITY [None]
  - OBSESSIVE-COMPULSIVE DISORDER [None]
